FAERS Safety Report 13963249 (Version 10)
Quarter: 2021Q4

REPORT INFORMATION
  Report Type: Spontaneous
  Country: US (occurrence: US)
  Receive Date: 20170913
  Receipt Date: 20211004
  Transmission Date: 20220303
  Serious: Yes (Other)
  Sender: FDA-Public Use
  Company Number: US-PFIZER INC-2017393129

PATIENT
  Age: 65 Year
  Sex: Male
  Weight: 95.25 kg

DRUGS (4)
  1. CELEBREX [Suspect]
     Active Substance: CELECOXIB
     Indication: Back pain
     Dosage: 200 MG, 1X/DAY
     Route: 048
  2. CELEBREX [Suspect]
     Active Substance: CELECOXIB
     Indication: Bone pain
  3. CELEBREX [Suspect]
     Active Substance: CELECOXIB
     Indication: Arthralgia
  4. LAMICTAL XR [Concomitant]
     Active Substance: LAMOTRIGINE
     Indication: Bipolar disorder
     Dosage: 300 MG, 1X/DAY
     Route: 048

REACTIONS (12)
  - Prostate cancer [Recovered/Resolved]
  - Product dose omission issue [Unknown]
  - Bladder disorder [Unknown]
  - Migraine [Unknown]
  - Musculoskeletal discomfort [Unknown]
  - Influenza [Recovering/Resolving]
  - Dizziness [Recovering/Resolving]
  - Nasopharyngitis [Recovering/Resolving]
  - Illness [Recovering/Resolving]
  - Mobility decreased [Unknown]
  - Arthritis [Unknown]
  - Amnesia [Unknown]

NARRATIVE: CASE EVENT DATE: 20191228
